FAERS Safety Report 17056771 (Version 3)
Quarter: 2019Q4

REPORT INFORMATION
  Report Type: Spontaneous
  Country: DK (occurrence: DK)
  Receive Date: 20191121
  Receipt Date: 20191204
  Transmission Date: 20200122
  Serious: Yes (Other)
  Sender: FDA-Public Use
  Company Number: DK-AUROBINDO-AUR-APL-2019-073595

PATIENT
  Age: 19 Year
  Sex: Female
  Weight: 55 kg

DRUGS (3)
  1. LAMOTRIGINE AUROBINDO TABLETS 25MG [Suspect]
     Active Substance: LAMOTRIGINE
     Indication: BIPOLAR DISORDER
     Dosage: OPTRAPNING FRA 25-200 MG DAGLIGT
     Route: 048
     Dates: start: 20190711, end: 20190901
  2. METHYLPHENIDATE. [Concomitant]
     Active Substance: METHYLPHENIDATE
     Indication: ATTENTION DEFICIT/HYPERACTIVITY DISORDER
     Dosage: 18 MILLIGRAM, ONCE A DAY (STYRKE: 18 MG)
     Route: 048
     Dates: start: 201903
  3. LAMOTRIGIN TEVA 200 MG [Suspect]
     Active Substance: LAMOTRIGINE
     Indication: BIPOLAR DISORDER
     Dosage: OPTRAPNING FRA 25-200 MG DAGLIGT
     Route: 048
     Dates: start: 20190711, end: 20190901

REACTIONS (4)
  - Restlessness [Recovered/Resolved]
  - Panic attack [Recovered/Resolved]
  - Anxiety [Recovered/Resolved]
  - Hallucination [Recovered/Resolved]

NARRATIVE: CASE EVENT DATE: 201908
